FAERS Safety Report 17837917 (Version 1)
Quarter: 2020Q2

REPORT INFORMATION
  Report Type: Spontaneous
  Country: AR (occurrence: AR)
  Receive Date: 20200528
  Receipt Date: 20200528
  Transmission Date: 20200714
  Serious: Yes (Other)
  Sender: FDA-Public Use
  Company Number: AR-AMGEN-ARGSP2020083295

PATIENT
  Age: 64 Year
  Sex: Female

DRUGS (1)
  1. ENBREL [Suspect]
     Active Substance: ETANERCEPT
     Indication: RHEUMATOID ARTHRITIS
     Dosage: 50 MG, WEEKLY
     Route: 065
     Dates: start: 20140901

REACTIONS (8)
  - Malaise [Unknown]
  - Lung disorder [Unknown]
  - Blood insulin abnormal [Unknown]
  - Cough [Unknown]
  - Alveolar lung disease [Unknown]
  - Thrombosis [Unknown]
  - Fungal infection [Unknown]
  - Haemoptysis [Unknown]

NARRATIVE: CASE EVENT DATE: 2017
